FAERS Safety Report 9460626 (Version 1)
Quarter: 2013Q3

REPORT INFORMATION
  Report Type: Spontaneous
  Country: NL (occurrence: NL)
  Receive Date: 20130815
  Receipt Date: 20130815
  Transmission Date: 20140515
  Serious: Yes (Death, Other)
  Sender: FDA-Public Use
  Company Number: PHHY2013NL086966

PATIENT
  Age: 61 Year
  Sex: Female

DRUGS (1)
  1. THIAMAZOLE [Suspect]
     Indication: BASEDOW^S DISEASE

REACTIONS (16)
  - Agranulocytosis [Fatal]
  - Neutropenia [Fatal]
  - Cardiac arrest [Fatal]
  - Sepsis [Unknown]
  - Pyrexia [Unknown]
  - Hypotension [Unknown]
  - Urine output decreased [Unknown]
  - Pneumonia [Unknown]
  - Dyspnoea [Unknown]
  - Malaise [Unknown]
  - Rales [Unknown]
  - Cellulitis [Unknown]
  - Local swelling [Unknown]
  - Blister [Unknown]
  - Erythema [Unknown]
  - Necrosis [Unknown]
